FAERS Safety Report 10267745 (Version 7)
Quarter: 2015Q1

REPORT INFORMATION
  Report Type: Report from Study
  Country: CA (occurrence: CA)
  Receive Date: 20140630
  Receipt Date: 20150114
  Transmission Date: 20150720
  Serious: Yes (Hospitalization, Other)
  Sender: FDA-Public Use
  Company Number: PHHY2014CA034259

PATIENT
  Age: 49 Year
  Sex: Female

DRUGS (9)
  1. CLOZARIL [Suspect]
     Active Substance: CLOZAPINE
     Dosage: 700 MG, QD PM
     Route: 048
     Dates: start: 201405, end: 20140715
  2. ATORVASTATIN [Concomitant]
     Active Substance: ATORVASTATIN
     Indication: PRODUCT USED FOR UNKNOWN INDICATION
     Dosage: 10 MG, QD
     Route: 065
  3. OLANZAPINE. [Concomitant]
     Active Substance: OLANZAPINE
     Indication: PRODUCT USED FOR UNKNOWN INDICATION
     Dosage: 20 MG, QD
     Route: 065
  4. CLOZARIL [Suspect]
     Active Substance: CLOZAPINE
     Dosage: UNK
     Route: 048
  5. CLOZARIL [Suspect]
     Active Substance: CLOZAPINE
     Indication: SCHIZOPHRENIA
     Dosage: 700 MG, QD PM
     Route: 048
     Dates: start: 19991012
  6. COLACE [Concomitant]
     Active Substance: DOCUSATE SODIUM
     Indication: PRODUCT USED FOR UNKNOWN INDICATION
     Dosage: 200 MG, QHS
     Route: 065
  7. SOFLAX [Concomitant]
     Active Substance: DOCUSATE
     Indication: PRODUCT USED FOR UNKNOWN INDICATION
     Dosage: 100 MG, QD
     Route: 065
  8. TRIPHASIL-28 [Concomitant]
     Active Substance: ETHINYL ESTRADIOL\LEVONORGESTREL
     Indication: PRODUCT USED FOR UNKNOWN INDICATION
     Dosage: UNK
     Route: 065
  9. CLOZARIL [Suspect]
     Active Substance: CLOZAPINE
     Dosage: 300 MG, QD
     Route: 048
     Dates: start: 2008

REACTIONS (22)
  - Febrile neutropenia [Recovering/Resolving]
  - Urinary tract infection [Recovering/Resolving]
  - Agitation [Unknown]
  - Anger [Unknown]
  - Infection [Unknown]
  - Delusion [Not Recovered/Not Resolved]
  - Aggression [Unknown]
  - Malaise [Unknown]
  - Weight decreased [Recovered/Resolved]
  - Hallucination, auditory [Not Recovered/Not Resolved]
  - Fatigue [Unknown]
  - Seizure [Recovered/Resolved]
  - Pyrexia [Recovered/Resolved]
  - Antipsychotic drug level increased [Unknown]
  - Acute psychosis [Unknown]
  - White blood cell count decreased [Recovered/Resolved]
  - Irritability [Unknown]
  - Cough [Unknown]
  - Dehydration [Unknown]
  - Eating disorder [Unknown]
  - Psychiatric decompensation [Unknown]
  - Anxiety [Unknown]

NARRATIVE: CASE EVENT DATE: 2002
